FAERS Safety Report 5911460-9 (Version None)
Quarter: 2008Q4

REPORT INFORMATION
  Report Type: 
  Country: None (occurrence: None)
  Receive Date: 20081002
  Receipt Date: 20080918
  Transmission Date: 20090506
  Serious: Yes (Other)
  Sender: FDA-Public Use
  Company Number: IMP_03802_2008

PATIENT
  Sex: Female
  Weight: 58.9676 kg

DRUGS (3)
  1. BUDEPRION XL (TEVA PHARMACEUTICALS) 300 MG [Suspect]
     Indication: DEPRESSION
     Dosage: (300 MG QD ORAL)
     Route: 048
     Dates: start: 20060201, end: 20070901
  2. BUDEPRION XL (TEVA PHARMACEUTICALS) 300 MG [Suspect]
     Indication: SEASONAL AFFECTIVE DISORDER
     Dosage: (300 MG QD ORAL)
     Route: 048
     Dates: start: 20060201, end: 20070901
  3. ZOLOFT [Concomitant]

REACTIONS (12)
  - ANXIETY [None]
  - CONDITION AGGRAVATED [None]
  - DEPRESSION [None]
  - DRUG EFFECT DECREASED [None]
  - FEELING ABNORMAL [None]
  - GASTROINTESTINAL DISORDER [None]
  - HEADACHE [None]
  - MUSCLE SPASMS [None]
  - NAUSEA [None]
  - PERFORMANCE STATUS DECREASED [None]
  - STRESS [None]
  - THERAPEUTIC RESPONSE UNEXPECTED WITH DRUG SUBSTITUTION [None]
